FAERS Safety Report 8241480-3 (Version None)
Quarter: 2012Q1

REPORT INFORMATION
  Report Type: 
  Country: None (occurrence: None)
  Receive Date: 20120328
  Receipt Date: 20120323
  Transmission Date: 20120608
  Serious: Yes (Hospitalization)
  Sender: FDA-Public Use
  Company Number: US-ROCHE-798168

PATIENT
  Sex: Female
  Weight: 71 kg

DRUGS (4)
  1. VEMURAFENIB [Suspect]
     Dosage: DOSE WAS REDUCED
     Route: 048
  2. VANCOMYCIN [Concomitant]
     Route: 042
  3. VEMURAFENIB [Suspect]
     Indication: METASTATIC MALIGNANT MELANOMA
     Dosage: LAST DOSE PRIOR TO SAE: 18 SEP 2011
     Route: 048
  4. DIPHENHYDRAMINE HCL [Concomitant]
     Route: 048

REACTIONS (1)
  - DERMATITIS [None]
